FAERS Safety Report 14346081 (Version 1)
Quarter: 2018Q1

REPORT INFORMATION
  Report Type: Spontaneous
  Country: JP (occurrence: JP)
  Receive Date: 20180103
  Receipt Date: 20180103
  Transmission Date: 20180509
  Serious: Yes (Death)
  Sender: FDA-Public Use
  Company Number: JP-ACTELION-A-CH2017-164759

PATIENT

DRUGS (1)
  1. TRACLEER [Suspect]
     Active Substance: BOSENTAN
     Indication: COMBINED PULMONARY FIBROSIS AND EMPHYSEMA
     Route: 048

REACTIONS (2)
  - Combined pulmonary fibrosis and emphysema [Fatal]
  - Condition aggravated [Fatal]
